FAERS Safety Report 6657627-6 (Version None)
Quarter: 2010Q1

REPORT INFORMATION
  Report Type: 
  Country: None (occurrence: None)
  Receive Date: 20100330
  Receipt Date: 20100324
  Transmission Date: 20100710
  Serious: Yes (Other)
  Sender: FDA-Public Use
  Company Number: US-BAYER-201014575NA

PATIENT
  Sex: Female

DRUGS (1)
  1. CLIMARA PRO [Suspect]
     Indication: DRUG USE FOR UNKNOWN INDICATION
     Dosage: NOT USING CLIMARA AS IT DIDN'T STICK AT ALL
     Dates: start: 19850101, end: 20100201

REACTIONS (2)
  - NO ADVERSE EVENT [None]
  - SALPINGO-OOPHORECTOMY BILATERAL [None]
